FAERS Safety Report 9468571 (Version 3)
Quarter: 2013Q3

REPORT INFORMATION
  Report Type: Spontaneous
  Country: JP (occurrence: JP)
  Receive Date: 20130821
  Receipt Date: 20130913
  Transmission Date: 20140515
  Serious: Yes (Hospitalization)
  Sender: FDA-Public Use
  Company Number: JP-GLAXOSMITHKLINE-B0916379A

PATIENT
  Age: 92 Year
  Sex: Male
  Weight: 34 kg

DRUGS (1)
  1. VALTREX [Suspect]
     Indication: HERPES ZOSTER
     Dosage: 1000MG THREE TIMES PER DAY
     Route: 048
     Dates: start: 20130813, end: 20130814

REACTIONS (4)
  - Altered state of consciousness [Recovered/Resolved]
  - Renal failure chronic [Unknown]
  - Screaming [Unknown]
  - Abnormal behaviour [Unknown]
